FAERS Safety Report 5647735-0 (Version None)
Quarter: 2008Q1

REPORT INFORMATION
  Report Type: 
  Country: None (occurrence: None)
  Receive Date: 20080228
  Receipt Date: 20080222
  Transmission Date: 20080703
  Serious: Yes (Death, Hospitalization)
  Sender: FDA-Public Use
  Company Number: 163-21880-08021448

PATIENT
  Age: 57 Year
  Sex: Female

DRUGS (3)
  1. REVLIMID [Suspect]
     Indication: MULTIPLE MYELOMA
     Dosage: 10MG - 15MG, DAILY, ORAL, 10MG - 25MG, DAILY, ORAL, 10 MG, 1 IN 1 D, ORAL
     Route: 048
     Dates: start: 20060622, end: 20060801
  2. REVLIMID [Suspect]
     Indication: MULTIPLE MYELOMA
     Dosage: 10MG - 15MG, DAILY, ORAL, 10MG - 25MG, DAILY, ORAL, 10 MG, 1 IN 1 D, ORAL
     Route: 048
     Dates: start: 20060926, end: 20061101
  3. REVLIMID [Suspect]
     Indication: MULTIPLE MYELOMA
     Dosage: 10MG - 15MG, DAILY, ORAL, 10MG - 25MG, DAILY, ORAL, 10 MG, 1 IN 1 D, ORAL
     Route: 048
     Dates: start: 20061205, end: 20070801

REACTIONS (1)
  - DISEASE PROGRESSION [None]
